FAERS Safety Report 6994009-1 (Version None)
Quarter: 2010Q3

REPORT INFORMATION
  Report Type: 
  Country: None (occurrence: None)
  Receive Date: 20100917
  Receipt Date: 20100610
  Transmission Date: 20110219
  Serious: No
  Sender: FDA-Public Use
  Company Number: US-ASTRAZENECA-2010SE27098

PATIENT
  Sex: Female
  Weight: 97.1 kg

DRUGS (8)
  1. SEROQUEL [Suspect]
     Indication: BIPOLAR DISORDER
     Dosage: 50-50 MG AM AND NOON, 100 MG HS
     Route: 048
     Dates: start: 20080201, end: 20100401
  2. SEROQUEL [Suspect]
     Route: 048
  3. VALPROEX ACID [Concomitant]
  4. BROMOCRYPTINE [Concomitant]
  5. NAMENDA [Concomitant]
  6. PROZAC [Concomitant]
  7. ARICEPT [Concomitant]
  8. CHLOROPRAMAZINE [Concomitant]

REACTIONS (3)
  - DRUG DOSE OMISSION [None]
  - IMPAIRED WORK ABILITY [None]
  - SOMNOLENCE [None]
